FAERS Safety Report 15839841 (Version 4)
Quarter: 2019Q1

REPORT INFORMATION
  Report Type: Report from Study
  Country: US (occurrence: US)
  Receive Date: 20190117
  Receipt Date: 20190226
  Transmission Date: 20190417
  Serious: Yes (Hospitalization)
  Sender: FDA-Public Use
  Company Number: US-ACTELION-A-NJ2018-168839

PATIENT
  Age: 74 Year
  Sex: Female
  Weight: 71.66 kg

DRUGS (10)
  1. ELIQUIS [Concomitant]
     Active Substance: APIXABAN
     Dosage: 2.5 MG, BID
  2. TIKOSYN [Concomitant]
     Active Substance: DOFETILIDE
     Dosage: 125 MG, BID
  3. SILDENAFIL. [Concomitant]
     Active Substance: SILDENAFIL
     Dosage: 80 MG, TID
  4. TRACLEER [Suspect]
     Active Substance: BOSENTAN
     Indication: PULMONARY ARTERIAL HYPERTENSION
     Dosage: 125 MG, BID
     Route: 048
     Dates: start: 2013
  5. SPIRONOLACTONE. [Concomitant]
     Active Substance: SPIRONOLACTONE
     Dosage: 25 MG, UNK
  6. PAXIL [Concomitant]
     Active Substance: PAROXETINE HYDROCHLORIDE
     Dosage: 10 MG, UNK
  7. IMURAN [Concomitant]
     Active Substance: AZATHIOPRINE
  8. LASIX [Concomitant]
     Active Substance: FUROSEMIDE
  9. TORSEMIDE. [Concomitant]
     Active Substance: TORSEMIDE
     Dosage: 10 MG, UNK
  10. TYVASO [Concomitant]
     Active Substance: TREPROSTINIL
     Dosage: 54 MCG, QID

REACTIONS (13)
  - Leukocytosis [Recovered/Resolved]
  - Gastroenteritis [Recovered/Resolved]
  - Dyspnoea [Recovering/Resolving]
  - Pleural effusion [Unknown]
  - Pneumonia [Recovering/Resolving]
  - Hypoxia [Recovering/Resolving]
  - Diarrhoea [Recovered/Resolved]
  - Condition aggravated [Recovering/Resolving]
  - Pyrexia [Recovered/Resolved]
  - Dyspnoea exertional [Unknown]
  - Acute respiratory failure [Recovering/Resolving]
  - Bacterial infection [Unknown]
  - Pulmonary arterial hypertension [Unknown]

NARRATIVE: CASE EVENT DATE: 20181224
